FAERS Safety Report 20899395 (Version 1)
Quarter: 2022Q2

REPORT INFORMATION
  Report Type: Report from Study
  Country: CA (occurrence: CA)
  Receive Date: 20220601
  Receipt Date: 20220601
  Transmission Date: 20220721
  Serious: Yes (Other)
  Sender: FDA-Public Use
  Company Number: CA-ABBVIE-22K-028-4415699-00

PATIENT
  Age: 32 Year
  Sex: Male

DRUGS (1)
  1. HUMIRA [Suspect]
     Active Substance: ADALIMUMAB
     Indication: Ankylosing spondylitis
     Route: 058
     Dates: start: 20170607

REACTIONS (14)
  - Knee operation [Unknown]
  - Spinal fracture [Unknown]
  - Intentional product misuse [Unknown]
  - Condition aggravated [Unknown]
  - Post procedural swelling [Unknown]
  - Road traffic accident [Unknown]
  - Road traffic accident [Unknown]
  - Injury [Unknown]
  - Surgery [Unknown]
  - Arthralgia [Unknown]
  - Therapeutic response shortened [Unknown]
  - Pain [Recovering/Resolving]
  - Pain in extremity [Unknown]
  - Back pain [Unknown]

NARRATIVE: CASE EVENT DATE: 20210101
